FAERS Safety Report 8490829-5 (Version None)
Quarter: 2012Q3

REPORT INFORMATION
  Report Type: 
  Country: None (occurrence: None)
  Receive Date: 20120706
  Receipt Date: 20120628
  Transmission Date: 20120928
  Serious: No
  Sender: FDA-Public Use
  Company Number: US-BIOGENIDEC-2012BI022949

PATIENT
  Sex: Female

DRUGS (3)
  1. AVONEX [Suspect]
     Route: 030
     Dates: start: 20090820, end: 20110701
  2. AVONEX [Suspect]
     Indication: MULTIPLE SCLEROSIS
     Route: 030
     Dates: start: 20000202, end: 20040601
  3. AVONEX [Suspect]
     Route: 030
     Dates: start: 20120113

REACTIONS (2)
  - MENOPAUSE [None]
  - MEMORY IMPAIRMENT [None]
